FAERS Safety Report 5004908-8 (Version None)
Quarter: 2006Q1

REPORT INFORMATION
  Report Type: 
  Country: None (occurrence: None)
  Receive Date: 20060321
  Receipt Date: 20060207
  Transmission Date: 20060701
  Serious: No
  Sender: FDA-Public Use
  Company Number: 2006US000336

PATIENT
  Age: 82 Year
  Sex: Female

DRUGS (1)
  1. VESICARE [Suspect]
     Indication: HYPERTONIC BLADDER
     Dosage: 1.5 MGUID/QD, ORAL
     Route: 048
     Dates: start: 20060101

REACTIONS (2)
  - CONSTIPATION [None]
  - STOMACH DISCOMFORT [None]
